FAERS Safety Report 20291571 (Version 1)
Quarter: 2022Q1

REPORT INFORMATION
  Report Type: Spontaneous
  Country: US (occurrence: None)
  Receive Date: 20220103
  Receipt Date: 20220103
  Transmission Date: 20220424
  Serious: Yes (Hospitalization)
  Sender: FDA-Public Use
  Company Number: None

PATIENT
  Sex: Female

DRUGS (10)
  1. MYCOPHENOLIC ACID [Suspect]
     Active Substance: MYCOPHENOLIC ACID
     Indication: Renal transplant
     Dosage: FREQUENCY : TWICE A DAY;?
     Route: 048
  2. NEORAL [Suspect]
     Active Substance: CYCLOSPORINE
     Indication: Renal transplant
     Dosage: OTHER FREQUENCY : 4CAPS AM/3CAPS PM;?
     Route: 048
  3. BABY ASPIRIN [Concomitant]
  4. BUDESONIDE [Concomitant]
     Active Substance: BUDESONIDE
  5. CELLCEPT [Concomitant]
     Active Substance: MYCOPHENOLATE MOFETIL
  6. MYCOPHENOLATE MOFETIL [Concomitant]
  7. NEORAL [Concomitant]
     Active Substance: CYCLOSPORINE
  8. PAROXETINE [Concomitant]
     Active Substance: PAROXETINE
  9. ST JOSEPH [Concomitant]
  10. SULFAMETHAZ [Concomitant]

REACTIONS (1)
  - Surgery [None]
